FAERS Safety Report 8452184-6 (Version None)
Quarter: 2012Q2

REPORT INFORMATION
  Report Type: 
  Country: None (occurrence: None)
  Receive Date: 20120620
  Receipt Date: 20120614
  Transmission Date: 20120825
  Serious: Yes (Hospitalization)
  Sender: FDA-Public Use
  Company Number: FR-GLAXOSMITHKLINE-B0808001A

PATIENT
  Sex: Female

DRUGS (7)
  1. TIAPRIDAL [Concomitant]
     Route: 065
     Dates: start: 20090501
  2. ZOLPIDEM [Concomitant]
     Route: 065
     Dates: start: 20090501
  3. MEMANTINE HCL [Concomitant]
     Route: 065
     Dates: start: 20090501
  4. GALANTAMINE HYDROBROMIDE [Concomitant]
     Route: 065
     Dates: start: 20090501
  5. KEPPRA [Concomitant]
     Route: 065
     Dates: start: 20090501
  6. ENEMA [Concomitant]
     Dates: start: 20120520, end: 20120520
  7. LAMICTAL [Suspect]
     Indication: PRODUCT USED FOR UNKNOWN INDICATION
     Route: 048
     Dates: start: 20110501

REACTIONS (3)
  - FAECALOMA [None]
  - CONSTIPATION [None]
  - ABDOMINAL DISTENSION [None]
